FAERS Safety Report 15482155 (Version 1)
Quarter: 2018Q4

REPORT INFORMATION
  Report Type: Spontaneous
  Country: US (occurrence: US)
  Receive Date: 20181010
  Receipt Date: 20181010
  Transmission Date: 20190205
  Serious: Yes (Other)
  Sender: FDA-Public Use
  Company Number: US-HIKMA PHARMACEUTICALS USA INC.-US-H14001-18-07719

PATIENT
  Age: 46 Year
  Sex: Male

DRUGS (12)
  1. DEXAMETHASONE. [Suspect]
     Active Substance: DEXAMETHASONE
     Indication: BURSITIS
  2. DEXAMETHASONE. [Suspect]
     Active Substance: DEXAMETHASONE
     Indication: PLASMA CELL MYELOMA
     Route: 065
  3. RADIATION THERAPY [Suspect]
     Active Substance: RADIATION THERAPY
     Indication: AMYLOIDOSIS
  4. POMALIDOMIDE [Suspect]
     Active Substance: POMALIDOMIDE
     Indication: PLASMA CELL MYELOMA
     Route: 065
  5. IXAZOMIB [Suspect]
     Active Substance: IXAZOMIB
     Indication: PLASMA CELL MYELOMA
     Route: 065
  6. POMALIDOMIDE [Suspect]
     Active Substance: POMALIDOMIDE
     Indication: BURSITIS
  7. IXAZOMIB [Suspect]
     Active Substance: IXAZOMIB
     Indication: BURSITIS
  8. POMALIDOMIDE [Suspect]
     Active Substance: POMALIDOMIDE
     Indication: AMYLOIDOSIS
  9. RADIATION THERAPY [Suspect]
     Active Substance: RADIATION THERAPY
     Indication: BURSITIS
  10. RADIATION THERAPY [Suspect]
     Active Substance: RADIATION THERAPY
     Indication: PLASMA CELL MYELOMA
     Dosage: 20 GY IN 4 FRACTIONS
     Route: 065
  11. DEXAMETHASONE. [Suspect]
     Active Substance: DEXAMETHASONE
     Indication: AMYLOIDOSIS
  12. IXAZOMIB [Suspect]
     Active Substance: IXAZOMIB
     Indication: AMYLOIDOSIS

REACTIONS (4)
  - Hypercalcaemia [Unknown]
  - Hepatic amyloidosis [Unknown]
  - Eastern Cooperative Oncology Group performance status worsened [Unknown]
  - Condition aggravated [Unknown]
